FAERS Safety Report 4584652-1 (Version None)
Quarter: 2005Q1

REPORT INFORMATION
  Report Type: 
  Country: None (occurrence: None)
  Receive Date: 20050125
  Receipt Date: 20040916
  Transmission Date: 20050727
  Serious: No
  Sender: FDA-Public Use
  Company Number: USA040978564

PATIENT
  Age: 82 Year
  Sex: Female
  Weight: 57 kg

DRUGS (2)
  1. FORTEO [Suspect]
     Indication: OSTEOPOROSIS
     Dates: start: 20040601
  2. REMICADE [Concomitant]

REACTIONS (3)
  - ABDOMINAL PAIN UPPER [None]
  - DIARRHOEA [None]
  - FATIGUE [None]
